FAERS Safety Report 15805842 (Version 1)
Quarter: 2019Q1

REPORT INFORMATION
  Report Type: Spontaneous
  Country: US (occurrence: US)
  Receive Date: 20190110
  Receipt Date: 20190110
  Transmission Date: 20190417
  Serious: No
  Sender: FDA-Public Use
  Company Number: US-ELI_LILLY_AND_COMPANY-US201901001373

PATIENT
  Sex: Male

DRUGS (3)
  1. TRULICITY [Suspect]
     Active Substance: DULAGLUTIDE
     Dosage: 0.75 MG, UNKNOWN
     Route: 065
     Dates: start: 201812
  2. TOUJEO [Concomitant]
     Active Substance: INSULIN GLARGINE
     Indication: TYPE 2 DIABETES MELLITUS
     Dosage: 80 IU, UNK
  3. TRULICITY [Suspect]
     Active Substance: DULAGLUTIDE
     Indication: PRODUCT USED FOR UNKNOWN INDICATION
     Dosage: 0.75 MG, UNKNOWN
     Route: 065

REACTIONS (27)
  - Headache [Unknown]
  - Diarrhoea [Unknown]
  - Autophobia [Not Recovered/Not Resolved]
  - Decreased interest [Not Recovered/Not Resolved]
  - Blood glucose increased [Not Recovered/Not Resolved]
  - Anxiety [Unknown]
  - Tremor [Unknown]
  - Pain [Not Recovered/Not Resolved]
  - Somnolence [Unknown]
  - Stupor [Unknown]
  - Vision blurred [Unknown]
  - Vomiting [Unknown]
  - Decreased appetite [Unknown]
  - Disturbance in attention [Unknown]
  - Frustration tolerance decreased [Not Recovered/Not Resolved]
  - Feeling abnormal [Not Recovered/Not Resolved]
  - Dizziness [Not Recovered/Not Resolved]
  - Poor quality sleep [Not Recovered/Not Resolved]
  - Asthenia [Unknown]
  - Depressed mood [Not Recovered/Not Resolved]
  - Hunger [Unknown]
  - Irritability [Unknown]
  - Nasopharyngitis [Not Recovered/Not Resolved]
  - Influenza [Unknown]
  - Nausea [Unknown]
  - Abdominal discomfort [Unknown]
  - Malaise [Unknown]
